FAERS Safety Report 25251224 (Version 2)
Quarter: 2025Q2

REPORT INFORMATION
  Report Type: Spontaneous
  Country: US (occurrence: US)
  Receive Date: 20250429
  Receipt Date: 20250613
  Transmission Date: 20250717
  Serious: No
  Sender: LUNDBECK
  Company Number: US-LUNDBECK-DKLU4013567

PATIENT
  Age: 48 Year
  Sex: Female

DRUGS (1)
  1. VYEPTI [Suspect]
     Active Substance: EPTINEZUMAB-JJMR
     Indication: Migraine
     Dosage: 100 MILLIGRAM
     Route: 041
     Dates: start: 20240520

REACTIONS (1)
  - Drug ineffective [Not Recovered/Not Resolved]

NARRATIVE: CASE EVENT DATE: 20250101
